FAERS Safety Report 4838705-0 (Version None)
Quarter: 2005Q4

REPORT INFORMATION
  Report Type: 
  Country: None (occurrence: None)
  Receive Date: 20051129
  Receipt Date: 20050908
  Transmission Date: 20060501
  Serious: No
  Sender: FDA-Public Use
  Company Number: US-GLAXOSMITHKLINE-A0573422A

PATIENT
  Age: 34 Year
  Sex: Female

DRUGS (2)
  1. COMMIT [Suspect]
     Dates: start: 20050829, end: 20050905
  2. COMMIT [Suspect]
     Dates: start: 20050905

REACTIONS (4)
  - DIZZINESS [None]
  - FATIGUE [None]
  - MENTAL IMPAIRMENT [None]
  - VOMITING [None]
